FAERS Safety Report 12416148 (Version 3)
Quarter: 2016Q2

REPORT INFORMATION
  Report Type: Report from Study
  Country: CA (occurrence: CA)
  Receive Date: 20160530
  Receipt Date: 20160613
  Transmission Date: 20160815
  Serious: Yes (Death)
  Sender: FDA-Public Use
  Company Number: CA-HLSUS-2016-CA-000174

PATIENT
  Age: 80 Year
  Sex: Female

DRUGS (7)
  1. CLOZARIL [Suspect]
     Active Substance: CLOZAPINE
     Route: 048
     Dates: start: 20020507
  2. TARO-WARFARIN [Concomitant]
     Active Substance: WARFARIN
     Dosage: 1MG TAB ORALLY ONCE DAILY
     Route: 048
  3. PMS-VALPROIC [Concomitant]
     Dosage: 10 ML(500MG) MORNING + BEDTIME
  4. SENOKOT [Concomitant]
     Active Substance: SENNOSIDES
     Dosage: 1TABEVERYOTHERDAYAM+2TABHS
  5. ACETAMINOPHEN. [Concomitant]
     Active Substance: ACETAMINOPHEN
     Dosage: 500 MG 2 TAB 3 TIMES DAILY
     Route: 048
  6. LIPIDIL EZ [Concomitant]
     Active Substance: FENOFIBRATE
     Dosage: 1 TABLET ORALLY ONCE DAILY
     Route: 048
  7. TEVA-FUROSEMIDE [Concomitant]
     Active Substance: FUROSEMIDE
     Dosage: 20MG 1 TABLET TWICW DAILY
     Route: 048

REACTIONS (1)
  - Aortic aneurysm [Fatal]
